FAERS Safety Report 19391462 (Version 2)
Quarter: 2021Q2

REPORT INFORMATION
  Report Type: Report from Study
  Country: AU (occurrence: AU)
  Receive Date: 20210608
  Receipt Date: 20210628
  Transmission Date: 20210717
  Serious: Yes (Hospitalization)
  Sender: FDA-Public Use
  Company Number: AU-EMD SERONO-9242101

PATIENT
  Age: 44 Year
  Sex: Male
  Weight: 59 kg

DRUGS (1)
  1. CLADRIBINE. [Suspect]
     Active Substance: CLADRIBINE
     Indication: MULTIPLE SCLEROSIS
     Dosage: 3 (YEAR 1 WEEK 1 COMPLETE, YEAR 1 WEEK 5 COMPLETE, YEAR 2 WEEK 1 COMPLETE)
     Dates: start: 20200429, end: 20210507

REACTIONS (1)
  - Pneumonia [Recovered/Resolved]

NARRATIVE: CASE EVENT DATE: 20210512
